FAERS Safety Report 20143635 (Version 1)
Quarter: 2021Q4

REPORT INFORMATION
  Report Type: Report from Study
  Country: MK (occurrence: MK)
  Receive Date: 20211203
  Receipt Date: 20211203
  Transmission Date: 20220303
  Serious: Yes (Other)
  Sender: FDA-Public Use
  Company Number: MK-SUN PHARMACEUTICAL INDUSTRIES LTD-2021RR-318937

PATIENT
  Age: 46 Year
  Sex: Female

DRUGS (2)
  1. GEMCITABINE [Suspect]
     Active Substance: GEMCITABINE
     Indication: Lung adenocarcinoma stage IV
     Dosage: UNK, 2 CYCLES
     Route: 065
  2. CARBOPLATIN [Suspect]
     Active Substance: CARBOPLATIN
     Indication: Lung adenocarcinoma stage IV
     Dosage: UNK, 2 CYCLES
     Route: 065

REACTIONS (1)
  - Disease progression [Unknown]
